FAERS Safety Report 8302710-2 (Version None)
Quarter: 2012Q2

REPORT INFORMATION
  Report Type: 
  Country: None (occurrence: None)
  Receive Date: 20120420
  Receipt Date: 20120315
  Transmission Date: 20120825
  Serious: Yes (Hospitalization)
  Sender: FDA-Public Use
  Company Number: US-BAXTER-2012BH007808

PATIENT
  Sex: Female

DRUGS (4)
  1. CODEINE [Suspect]
     Route: 065
  2. DIANEAL [Suspect]
     Indication: PERITONEAL DIALYSIS
     Route: 033
     Dates: start: 20110101
  3. DIANEAL [Suspect]
     Route: 033
     Dates: start: 20110101
  4. DIANEAL [Suspect]
     Route: 033
     Dates: start: 20110101

REACTIONS (2)
  - ADVERSE DRUG REACTION [None]
  - THROMBOSIS [None]
